FAERS Safety Report 25089120 (Version 2)
Quarter: 2025Q1

REPORT INFORMATION
  Report Type: Report from Study
  Country: AT (occurrence: AT)
  Receive Date: 20250318
  Receipt Date: 20250326
  Transmission Date: 20250408
  Serious: Yes (Hospitalization)
  Sender: DAIICHI
  Company Number: AT-DSJP-DS-2025-122188-AT

PATIENT
  Sex: Male
  Weight: 55 kg

DRUGS (7)
  1. DATOPOTAMAB DERUXTECAN [Suspect]
     Active Substance: DATOPOTAMAB DERUXTECAN
     Indication: Non-small cell lung cancer
     Dosage: 6 MG/KG, ONCE EVERY 3 WK
     Route: 042
     Dates: start: 20241128, end: 20241128
  2. DATOPOTAMAB DERUXTECAN [Suspect]
     Active Substance: DATOPOTAMAB DERUXTECAN
     Indication: Lung adenocarcinoma
     Dosage: 6 MG/KG, ONCE EVERY 3 WK
     Route: 042
     Dates: start: 20241220, end: 20241220
  3. DATOPOTAMAB DERUXTECAN [Suspect]
     Active Substance: DATOPOTAMAB DERUXTECAN
     Dosage: 4 MG/KG, ONCE EVERY 3 WK
     Route: 042
     Dates: start: 20250115, end: 20250115
  4. PANTOPRAZOLE [Concomitant]
     Active Substance: PANTOPRAZOLE
     Indication: Reflux gastritis
     Dosage: 40 MG, QD
     Route: 048
     Dates: start: 20240801
  5. MELPHALAN [Concomitant]
     Active Substance: MELPHALAN
     Indication: Pain
     Dosage: 500 MG, TID
     Route: 048
     Dates: start: 20240707
  6. MUNDIDOL [Concomitant]
     Indication: Pain
     Dosage: 10 MG, BID
     Route: 048
     Dates: start: 20240801
  7. MUNDIDOL [Concomitant]
     Dosage: 30 MG, BID
     Route: 048
     Dates: start: 20240801

REACTIONS (1)
  - Dehydration [Recovered/Resolved]

NARRATIVE: CASE EVENT DATE: 20250103
